FAERS Safety Report 8611502-6 (Version None)
Quarter: 2012Q3

REPORT INFORMATION
  Report Type: 
  Country: None (occurrence: None)
  Receive Date: 20120822
  Receipt Date: 20120813
  Transmission Date: 20120928
  Serious: Yes (Other)
  Sender: FDA-Public Use
  Company Number: US-ASTRAZENECA-2012SE57440

PATIENT
  Age: 65 Year
  Sex: Male

DRUGS (2)
  1. SEROQUEL [Suspect]
     Indication: NIGHTMARE
     Route: 048
  2. SEROQUEL [Suspect]
     Indication: SLEEP DISORDER
     Route: 048

REACTIONS (3)
  - CONCUSSION [None]
  - LOWER LIMB FRACTURE [None]
  - OFF LABEL USE [None]
